FAERS Safety Report 14180607 (Version 1)
Quarter: 2017Q4

REPORT INFORMATION
  Report Type: Spontaneous
  Country: IT (occurrence: IT)
  Receive Date: 20171111
  Receipt Date: 20171111
  Transmission Date: 20180321
  Serious: Yes (Life-Threatening)
  Sender: FDA-Public Use
  Company Number: IT-TEVA-822965ACC

PATIENT
  Age: 70 Year
  Sex: Male
  Weight: 64 kg

DRUGS (1)
  1. OXALIPLATINO TEVA - 5 MG/ML CONCENTRATO PER SOLUZIONE PER INFUSIONE [Suspect]
     Active Substance: OXALIPLATIN
     Indication: CHEMOTHERAPY
     Route: 042

REACTIONS (5)
  - Infusion related reaction [Recovering/Resolving]
  - Pulse absent [Recovering/Resolving]
  - Vomiting [Recovering/Resolving]
  - Loss of consciousness [Recovering/Resolving]
  - Hypersensitivity [Recovering/Resolving]

NARRATIVE: CASE EVENT DATE: 20171026
